FAERS Safety Report 17008393 (Version 1)
Quarter: 2019Q4

REPORT INFORMATION
  Report Type: Spontaneous
  Country: US (occurrence: US)
  Receive Date: 20190928
  Receipt Date: 20190928
  Transmission Date: 20200122
  Serious: Yes (Hospitalization)
  Sender: FDA-Public Use
  Company Number: None

PATIENT

DRUGS (19)
  1. FUROSEMIDE. [Concomitant]
     Active Substance: FUROSEMIDE
  2. CARBOPLATIN. [Concomitant]
     Active Substance: CARBOPLATIN
  3. PANTOPRAZOLE [Concomitant]
     Active Substance: PANTOPRAZOLE
  4. VITAMIN D3 [Concomitant]
     Active Substance: CHOLECALCIFEROL
  5. ETOPOSIDE. [Concomitant]
     Active Substance: ETOPOSIDE
  6. ONDANSETRON [Concomitant]
     Active Substance: ONDANSETRON
  7. ATORVASTATIN [Concomitant]
     Active Substance: ATORVASTATIN
  8. GLIMEPIRIDE. [Concomitant]
     Active Substance: GLIMEPIRIDE
  9. RANITIDINE. [Concomitant]
     Active Substance: RANITIDINE
  10. AMIODARONE [Concomitant]
     Active Substance: AMIODARONE
  11. CARVEDILOL. [Concomitant]
     Active Substance: CARVEDILOL
  12. FERROUS SULFATE. [Concomitant]
     Active Substance: FERROUS SULFATE
  13. LORATIDINE [Concomitant]
     Active Substance: LORATADINE
  14. XGEVA [Suspect]
     Active Substance: DENOSUMAB
     Indication: OSTEOARTHRITIS
     Dosage: ?          OTHER FREQUENCY:EVERY4WKS;?
     Route: 058
     Dates: start: 20190820
  15. LOSARTAN POTASSIUM. [Concomitant]
     Active Substance: LOSARTAN POTASSIUM
  16. ASPIRIN. [Concomitant]
     Active Substance: ASPIRIN
  17. JANUVIA [Concomitant]
     Active Substance: SITAGLIPTIN PHOSPHATE
  18. ALLOPURINOL. [Concomitant]
     Active Substance: ALLOPURINOL
  19. AMLODIPINE [Concomitant]
     Active Substance: AMLODIPINE BESYLATE

REACTIONS (1)
  - Hospitalisation [None]
